FAERS Safety Report 12000783 (Version 3)
Quarter: 2017Q3

REPORT INFORMATION
  Report Type: Spontaneous
  Country: US (occurrence: US)
  Receive Date: 20160204
  Receipt Date: 20170829
  Transmission Date: 20171127
  Serious: Yes (Other)
  Sender: FDA-Public Use
  Company Number: US-SUN PHARMACEUTICAL INDUSTRIES LTD-2016US-110912

PATIENT
  Age: 55 Year
  Sex: Male

DRUGS (1)
  1. CYCLOBENZAPRINE. [Suspect]
     Active Substance: CYCLOBENZAPRINE
     Indication: MUSCLE TIGHTNESS
     Dosage: 10 MG, DAILY
     Route: 065

REACTIONS (3)
  - Quality of life decreased [Recovered/Resolved]
  - Sexual dysfunction [Recovered/Resolved]
  - Painful ejaculation [Recovered/Resolved]
